FAERS Safety Report 8370037-9 (Version None)
Quarter: 2012Q2

REPORT INFORMATION
  Report Type: 
  Country: None (occurrence: None)
  Receive Date: 20120518
  Receipt Date: 20120508
  Transmission Date: 20120825
  Serious: Yes (Other)
  Sender: FDA-Public Use
  Company Number: PHEH2012US009489

PATIENT
  Sex: Female
  Weight: 55.329 kg

DRUGS (11)
  1. CALCIFEROL [Concomitant]
     Dosage: 1 DF, QD
  2. LACTOBACILLUS [Concomitant]
     Dosage: 10 MG, QD
  3. OCTREOTIDE ACETATE [Concomitant]
     Dosage: 60 MG, UNK
  4. CALCIUM CARBONATE W/VITAMIN D NOS [Concomitant]
     Dosage: 1 DF, BID
  5. SPIRONOLACTONE [Concomitant]
     Dosage: 25 MG, UNK
  6. MULTI-VITAMINS [Concomitant]
  7. OMEGA-3-ACID ETHYL ESTERS [Concomitant]
  8. AFINITOR [Suspect]
     Indication: NEUROENDOCRINE TUMOUR
     Dosage: 5 MG, QD ((ACTUALLY 10 MG EVERY OTHER DAY)
     Route: 048
     Dates: start: 20111130
  9. AFINITOR [Suspect]
     Dosage: 5 MG, QD
     Dates: start: 20120102
  10. AFINITOR [Suspect]
     Indication: MALIGNANT NEOPLASM OF ISLETS OF LANGERHANS
     Dosage: 10 MG, UNK
     Route: 048
     Dates: start: 20111106, end: 20111130
  11. ASCORBIC ACID [Concomitant]

REACTIONS (16)
  - NEOPLASM PROGRESSION [None]
  - METASTASES TO LIVER [None]
  - NEOPLASM MALIGNANT [None]
  - LOCALISED INTRAABDOMINAL FLUID COLLECTION [None]
  - ABDOMINAL PAIN UPPER [None]
  - DIARRHOEA [None]
  - NEUTROPENIA [None]
  - ASCITES [None]
  - METASTASES TO SPINE [None]
  - PANCREATIC NEOPLASM [None]
  - FATIGUE [None]
  - SKIN LESION [None]
  - INTERVERTEBRAL DISC DEGENERATION [None]
  - INTERVERTEBRAL DISC PROTRUSION [None]
  - MUSCULOSKELETAL DISCOMFORT [None]
  - OEDEMA PERIPHERAL [None]
